FAERS Safety Report 19442905 (Version 1)
Quarter: 2021Q2

REPORT INFORMATION
  Report Type: Spontaneous
  Country: US (occurrence: US)
  Receive Date: 20210620
  Receipt Date: 20210620
  Transmission Date: 20210717
  Serious: No
  Sender: FDA-Public Use
  Company Number: None

PATIENT
  Sex: Female
  Weight: 103.5 kg

DRUGS (2)
  1. KELNOR 1/35 [Suspect]
     Active Substance: ETHINYL ESTRADIOL\ETHYNODIOL DIACETATE
     Indication: POLYCYSTIC OVARIES
     Route: 048
     Dates: start: 20181214, end: 20210527
  2. SPIRONOLACTONE. [Concomitant]
     Active Substance: SPIRONOLACTONE

REACTIONS (7)
  - Suicidal behaviour [None]
  - Memory impairment [None]
  - Lethargy [None]
  - Weight increased [None]
  - Anxiety [None]
  - Depression [None]
  - Anger [None]
